FAERS Safety Report 4758085-9 (Version None)
Quarter: 2005Q3

REPORT INFORMATION
  Report Type: 
  Country: None (occurrence: None)
  Receive Date: 20050831
  Receipt Date: 20010403
  Transmission Date: 20060218
  Serious: Yes (Hospitalization)
  Sender: FDA-Public Use
  Company Number: US-MERCK-01040381

PATIENT
  Age: 80 Year
  Sex: Female

DRUGS (4)
  1. FOSAMAX [Suspect]
     Indication: OSTEOPOROSIS
     Route: 048
     Dates: start: 19970101, end: 19970101
  2. CARDENE [Concomitant]
     Route: 065
  3. ASPIRIN [Concomitant]
     Route: 065
  4. NONSTEROIDAL ANTI-INFLAMMATORY DRUG (UNSPECIFIED) [Concomitant]
     Route: 065

REACTIONS (1)
  - GASTRIC ULCER HAEMORRHAGE [None]
